FAERS Safety Report 12606171 (Version 1)
Quarter: 2016Q3

REPORT INFORMATION
  Report Type: Spontaneous
  Country: US (occurrence: None)
  Receive Date: 20160728
  Receipt Date: 20160728
  Transmission Date: 20161109
  Serious: Yes (Disabling)
  Sender: FDA-Public Use
  Company Number: None

PATIENT
  Age: 72 Year
  Sex: Male
  Weight: 80.74 kg

DRUGS (2)
  1. LEVAFLOXACIN, 500 MG [Suspect]
     Active Substance: LEVOFLOXACIN
     Indication: URINARY TRACT INFECTION
     Route: 048
     Dates: start: 20160711, end: 20160721
  2. KIRKLAND DAILY MULTIVITAMINS [Concomitant]

REACTIONS (7)
  - Hypersensitivity [None]
  - Skin irritation [None]
  - Rash [None]
  - Fatigue [None]
  - Myalgia [None]
  - Arthralgia [None]
  - Neuropathy peripheral [None]

NARRATIVE: CASE EVENT DATE: 20160712
